FAERS Safety Report 4478313-7 (Version None)
Quarter: 2004Q4

REPORT INFORMATION
  Report Type: 
  Country: None (occurrence: None)
  Receive Date: 20041019
  Receipt Date: 20041013
  Transmission Date: 20050328
  Serious: Yes (Life-Threatening, Hospitalization)
  Sender: FDA-Public Use
  Company Number: FR-ROCHE-383147

PATIENT
  Age: 81 Year
  Sex: Female
  Weight: 43 kg

DRUGS (1)
  1. APRANAX [Suspect]
     Indication: OSTEOARTHRITIS
     Dosage: LONG TERM THERAPY.
     Route: 048

REACTIONS (7)
  - ANAEMIA [None]
  - APLASTIC ANAEMIA [None]
  - ASTHENIA [None]
  - GASTRIC ULCER [None]
  - GENERAL PHYSICAL HEALTH DETERIORATION [None]
  - HYPERCALCAEMIA [None]
  - RENAL FAILURE ACUTE [None]
